FAERS Safety Report 10493141 (Version 1)
Quarter: 2014Q4

REPORT INFORMATION
  Report Type: Spontaneous
  Country: US (occurrence: US)
  Receive Date: 20141002
  Receipt Date: 20141002
  Transmission Date: 20150528
  Serious: No
  Sender: FDA-Public Use
  Company Number: US-GLAXOSMITHKLINE-A1079658A

PATIENT
  Age: 61 Year
  Sex: Male
  Weight: 90.9 kg

DRUGS (3)
  1. ASA [Concomitant]
     Active Substance: ASPIRIN
     Indication: PLATELET COUNT
     Dosage: 81MG AT NIGHT
     Route: 048
     Dates: start: 1990
  2. ADVAIR HFA [Suspect]
     Active Substance: FLUTICASONE PROPIONATE\SALMETEROL XINAFOATE
     Indication: ASTHMA
     Route: 055
     Dates: start: 2011
  3. CRESTOR [Concomitant]
     Active Substance: ROSUVASTATIN CALCIUM
     Indication: LIPIDS
     Dosage: 5MG AT NIGHT
     Route: 048
     Dates: start: 2012

REACTIONS (1)
  - Insomnia [Recovering/Resolving]

NARRATIVE: CASE EVENT DATE: 20140110
